FAERS Safety Report 11754546 (Version 1)
Quarter: 2015Q4

REPORT INFORMATION
  Report Type: Spontaneous
  Country: US (occurrence: US)
  Receive Date: 20151119
  Receipt Date: 20151119
  Transmission Date: 20160304
  Serious: No
  Sender: FDA-Public Use
  Company Number: US-EMD SERONO-8053190

PATIENT
  Sex: Female

DRUGS (3)
  1. REBIF [Suspect]
     Active Substance: INTERFERON BETA-1A
     Indication: MULTIPLE SCLEROSIS
     Dates: start: 2013
  2. AMPYRA [Suspect]
     Active Substance: DALFAMPRIDINE
     Indication: PRODUCT USED FOR UNKNOWN INDICATION
  3. COPAXONE [Suspect]
     Active Substance: GLATIRAMER ACETATE
     Indication: PROGRESSIVE MULTIPLE SCLEROSIS

REACTIONS (6)
  - Paraesthesia [Unknown]
  - Influenza like illness [Unknown]
  - Injection site erythema [Unknown]
  - Injection site pain [Unknown]
  - Injection site swelling [Unknown]
  - Glossodynia [Unknown]

NARRATIVE: CASE EVENT DATE: 2015
